FAERS Safety Report 9916061 (Version 1)
Quarter: 2014Q1

REPORT INFORMATION
  Report Type: Spontaneous
  Country: US (occurrence: None)
  Receive Date: 20140219
  Receipt Date: 20140219
  Transmission Date: 20141002
  Serious: Yes (Death)
  Sender: FDA-Public Use
  Company Number: 2014P1001102

PATIENT
  Age: 35 Year
  Sex: Male

DRUGS (11)
  1. TESTOSTERONE [Suspect]
  2. HYDROCHLOROTHIAZIDE [Suspect]
     Dosage: UNKNOWN - UNKNOWN THERAPY DATES
  3. TESTOSTERONE PROPIONATE [Suspect]
     Dosage: UNKNOWN - UNKNWON THERAPY DATES
  4. NANDROLONE DECANOATE [Suspect]
  5. INSULIN [Suspect]
     Dosage: UNKNOWN - UNKNOWN THERAPY DATES
  6. HUMAN-GROWTH HORMONE [Suspect]
     Dosage: UNKNOWN - UNKNOWN THERAPY DATES
  7. THYROXINE [Suspect]
     Dosage: UNKNOWN - UNKNOWN THERAPY DATES
  8. CLENBUTEROL HYDROCHLORIDE [Suspect]
     Dosage: UNKNOWN - UNKNOWN
  9. L-GLUTAMINE /00503401/ [Suspect]
  10. ENHANCED LEUCINE AMINO ACID FORMULA [Suspect]
     Dosage: UNKNON - UNKNOWN
  11. AMILORIDE HYDROCHLORIDE [Suspect]

REACTIONS (23)
  - Blood pressure diastolic decreased [None]
  - Blood pressure orthostatic abnormal [None]
  - Hiccups [None]
  - Dehydration [None]
  - Acne [None]
  - Testicular atrophy [None]
  - Hepatomegaly [None]
  - Haemodialysis [None]
  - Hepatic failure [None]
  - Renal failure [None]
  - Bone marrow failure [None]
  - Encephalopathy [None]
  - Polyneuropathy [None]
  - Metal poisoning [None]
  - Hepatitis cholestatic [None]
  - Toxic neuropathy [None]
  - Myopathy [None]
  - Acute respiratory distress syndrome [None]
  - Lung abscess [None]
  - Hepatotoxicity [None]
  - Product container issue [None]
  - Hepatic cyst [None]
  - Product contamination physical [None]
